FAERS Safety Report 5210884-5 (Version None)
Quarter: 2007Q1

REPORT INFORMATION
  Report Type: 
  Country: None (occurrence: None)
  Receive Date: 20070117
  Receipt Date: 20070109
  Transmission Date: 20070707
  Serious: Yes (Other)
  Sender: FDA-Public Use
  Company Number: BR-PFIZER INC-2007003261

PATIENT
  Sex: Male

DRUGS (5)
  1. ALDACTONE [Suspect]
     Indication: CARDIAC DISORDER
     Route: 048
  2. CASODEX [Suspect]
     Indication: PROSTATIC SPECIFIC ANTIGEN INCREASED
     Route: 048
  3. LIPITOR [Concomitant]
     Route: 048
  4. GLYCEROL SUPPOSITORIES [Concomitant]
     Route: 054
  5. ZOLADEX [Concomitant]

REACTIONS (6)
  - COUGH [None]
  - ERUCTATION [None]
  - HYPERSENSITIVITY [None]
  - OESOPHAGEAL SPASM [None]
  - PROSTATE CANCER [None]
  - PROSTATIC SPECIFIC ANTIGEN INCREASED [None]
